FAERS Safety Report 13517220 (Version 1)
Quarter: 2017Q2

REPORT INFORMATION
  Report Type: Spontaneous
  Country: US (occurrence: US)
  Receive Date: 20170505
  Receipt Date: 20170505
  Transmission Date: 20170830
  Serious: Yes (Hospitalization)
  Sender: FDA-Public Use
  Company Number: None

PATIENT
  Age: 86 Year
  Sex: Female
  Weight: 49.03 kg

DRUGS (8)
  1. ZOLOFT [Concomitant]
     Active Substance: SERTRALINE HYDROCHLORIDE
  2. THERAGRAN [Concomitant]
     Active Substance: VITAMINS
  3. VANCOMYCIN [Suspect]
     Active Substance: VANCOMYCIN
     Indication: STAPHYLOCOCCAL INFECTION
     Route: 042
  4. REMERON [Concomitant]
     Active Substance: MIRTAZAPINE
  5. K-DUR [Concomitant]
     Active Substance: POTASSIUM CHLORIDE
  6. NS [Concomitant]
     Active Substance: SODIUM CHLORIDE
  7. FLONASE [Concomitant]
     Active Substance: FLUTICASONE PROPIONATE
  8. MIRAPEX [Concomitant]
     Active Substance: PRAMIPEXOLE DIHYDROCHLORIDE

REACTIONS (3)
  - Renal tubular necrosis [None]
  - Toxicity to various agents [None]
  - Acute kidney injury [None]

NARRATIVE: CASE EVENT DATE: 20161213
